FAERS Safety Report 25415891 (Version 3)
Quarter: 2025Q4

REPORT INFORMATION
  Report Type: Report from Study
  Country: US (occurrence: US)
  Receive Date: 20250610
  Receipt Date: 20251013
  Transmission Date: 20260118
  Serious: No
  Sender: JOHNSON AND JOHNSON
  Company Number: US-JNJFOC-20250600850

PATIENT
  Age: 41 Year
  Sex: Female

DRUGS (3)
  1. STELARA [Suspect]
     Active Substance: USTEKINUMAB
     Indication: Colitis ulcerative
     Route: 058
     Dates: start: 20240315
  2. STELARA [Suspect]
     Active Substance: USTEKINUMAB
     Indication: Crohn^s disease
  3. SINGULAIR TAB 10MG [Concomitant]
     Indication: Product used for unknown indication

REACTIONS (3)
  - Device issue [Unknown]
  - Incorrect dose administered by device [Unknown]
  - Product label issue [Unknown]

NARRATIVE: CASE EVENT DATE: 20250530
